FAERS Safety Report 10012257 (Version 3)
Quarter: 2014Q2

REPORT INFORMATION
  Report Type: Spontaneous
  Country: US (occurrence: US)
  Receive Date: 20140314
  Receipt Date: 20140611
  Transmission Date: 20141212
  Serious: Yes (Hospitalization)
  Sender: FDA-Public Use
  Company Number: 2014SP000683

PATIENT
  Age: 71 Year
  Sex: Male

DRUGS (30)
  1. IRINOTECAN [Suspect]
     Indication: COLORECTAL CANCER METASTATIC
     Route: 042
     Dates: start: 20131015, end: 20131202
  2. IRINOTECAN [Suspect]
     Indication: COLORECTAL CANCER METASTATIC
     Route: 042
     Dates: start: 20131226
  3. FLUOROURACIL [Suspect]
     Indication: COLORECTAL CANCER METASTATIC
     Route: 042
     Dates: start: 20131015, end: 20131202
  4. FLUOROURACIL [Suspect]
     Indication: COLORECTAL CANCER METASTATIC
     Route: 042
     Dates: start: 20131226
  5. OXALIPLATIN [Suspect]
     Indication: COLORECTAL CANCER METASTATIC
     Route: 042
     Dates: start: 20131015, end: 20131202
  6. OXALIPLATIN [Suspect]
     Indication: COLORECTAL CANCER METASTATIC
     Route: 042
     Dates: start: 20131226
  7. FOLINIC ACID [Suspect]
     Indication: COLORECTAL CANCER METASTATIC
     Route: 042
     Dates: start: 20131015, end: 20131202
  8. FOLINIC ACID [Suspect]
     Indication: COLORECTAL CANCER METASTATIC
     Route: 042
     Dates: start: 20131226
  9. BEVACIZUMAB [Suspect]
     Indication: COLORECTAL CANCER METASTATIC
     Route: 042
     Dates: start: 20131015, end: 20131202
  10. BEVACIZUMAB [Suspect]
     Indication: COLORECTAL CANCER METASTATIC
     Route: 042
     Dates: start: 20131226
  11. OXYCODONE HYDROCHLORIDE W/PARACETAMOL [Concomitant]
     Indication: PAIN
     Route: 048
     Dates: start: 2013
  12. OXYCODONE HYDROCHLORIDE W/PARACETAMOL [Concomitant]
     Indication: NEOPLASM MALIGNANT
     Route: 048
     Dates: start: 2013
  13. TESTOSTERONE CIPIONATE [Concomitant]
     Indication: SUPPLEMENTATION THERAPY
     Dates: start: 2007
  14. VYTORIN [Concomitant]
     Indication: BLOOD CHOLESTEROL INCREASED
     Route: 048
     Dates: start: 2003
  15. DHEA [Concomitant]
     Indication: SUPPLEMENTATION THERAPY
     Route: 048
     Dates: start: 2001
  16. FISH OIL [Concomitant]
     Dates: start: 2003
  17. ALANINE [Concomitant]
     Indication: SUPPLEMENTATION THERAPY
     Route: 048
     Dates: start: 2001
  18. VITAMIN B 12 [Concomitant]
     Indication: SUPPLEMENTATION THERAPY
     Route: 030
     Dates: start: 2005
  19. VITAMIN D3 [Concomitant]
     Indication: SUPPLEMENTATION THERAPY
     Route: 048
     Dates: start: 2008
  20. TOCOPHEROL [Concomitant]
     Indication: SUPPLEMENTATION THERAPY
     Route: 048
     Dates: start: 2001
  21. ALFUZOSIN HYDROCHLORIDE [Concomitant]
     Indication: BENIGN PROSTATIC HYPERPLASIA
     Route: 048
     Dates: start: 2008
  22. ATENOLOL [Concomitant]
     Indication: HYPERTENSION
     Route: 048
     Dates: start: 2003
  23. ATENOLOL [Concomitant]
     Indication: HYPERTENSION
     Dates: start: 20140127
  24. AVODART [Concomitant]
     Indication: BENIGN PROSTATIC HYPERPLASIA
     Route: 048
     Dates: start: 2008
  25. DEXAMFETAMINE [Concomitant]
     Indication: NARCOLEPSY
     Route: 048
     Dates: start: 2006
  26. OMEPRAZOLE [Concomitant]
     Indication: GASTROOESOPHAGEAL REFLUX DISEASE
     Route: 048
     Dates: start: 2008
  27. DILAUDID [Concomitant]
     Route: 048
     Dates: start: 20140126
  28. ROCEPHINE [Concomitant]
     Route: 042
     Dates: start: 20140127, end: 20140209
  29. POLYETHYLENE GLYCOL [Concomitant]
     Route: 048
     Dates: start: 20140127
  30. FENTANYL CITRATE [Concomitant]
     Dates: start: 20140125

REACTIONS (10)
  - Sepsis [Recovered/Resolved]
  - Pneumonia [Recovered/Resolved]
  - Dyspnoea [Recovered/Resolved]
  - Chest pain [Recovered/Resolved]
  - Productive cough [Recovered/Resolved]
  - Body temperature increased [Recovered/Resolved]
  - Dehydration [Recovered/Resolved]
  - Nausea [Recovered/Resolved]
  - Vomiting [Recovered/Resolved]
  - Diarrhoea [Recovered/Resolved]
